FAERS Safety Report 6701179-9 (Version None)
Quarter: 2010Q2

REPORT INFORMATION
  Report Type: 
  Country: None (occurrence: None)
  Receive Date: 20100428
  Receipt Date: 20100428
  Transmission Date: 20101027
  Serious: No
  Sender: FDA-Public Use
  Company Number: None

PATIENT
  Age: 67 Year
  Sex: Female
  Weight: 49 kg

DRUGS (9)
  1. MICAFUNGIN [Suspect]
     Indication: FUNGAEMIA
     Dosage: 100MG Q24H IV
     Route: 042
  2. VORICONAZOLE [Suspect]
     Indication: FUNGAEMIA
     Dosage: 200MG PFIZER ONE DOSE PO
     Route: 048
  3. LIDODERM [Concomitant]
  4. VANCOMYCIN [Concomitant]
  5. FUROSEMIDE [Concomitant]
  6. PNEUMOVAX 23 [Concomitant]
  7. PROPOFOL [Concomitant]
  8. LORATADINE [Concomitant]
  9. CYCLOBENZAPRINE [Concomitant]

REACTIONS (1)
  - DEAFNESS [None]
